FAERS Safety Report 4753079-1 (Version None)
Quarter: 2005Q3

REPORT INFORMATION
  Report Type: 
  Country: None (occurrence: None)
  Receive Date: 20050826
  Receipt Date: 20050801
  Transmission Date: 20060218
  Serious: Yes (Hospitalization)
  Sender: FDA-Public Use
  Company Number: JP-MERCK-0508USA01568

PATIENT
  Age: 16 Year
  Sex: Male

DRUGS (4)
  1. SINGULAIR [Suspect]
     Indication: ASTHMA
     Route: 048
     Dates: start: 20050713, end: 20050731
  2. TULOBUTEROL [Concomitant]
     Indication: ASTHMA
     Route: 065
     Dates: start: 20050713, end: 20050731
  3. ACETAMINOPHEN [Concomitant]
     Indication: TOOTHACHE
     Route: 048
     Dates: start: 20050712, end: 20050714
  4. ZOCOR [Concomitant]
     Route: 065
     Dates: start: 20050713

REACTIONS (1)
  - DRUG ERUPTION [None]
